FAERS Safety Report 12847531 (Version 1)
Quarter: 2016Q4

REPORT INFORMATION
  Report Type: Spontaneous
  Country: BR (occurrence: BR)
  Receive Date: 20161014
  Receipt Date: 20161014
  Transmission Date: 20170207
  Serious: Yes (Other)
  Sender: FDA-Public Use
  Company Number: BR-PFIZER INC-2016475645

PATIENT
  Sex: Female

DRUGS (1)
  1. XALATAN [Suspect]
     Active Substance: LATANOPROST

REACTIONS (4)
  - Glaucoma [Unknown]
  - Corneal disorder [Unknown]
  - Eye oedema [Unknown]
  - Corneal degeneration [Unknown]
